FAERS Safety Report 4718287-4 (Version None)
Quarter: 2005Q3

REPORT INFORMATION
  Report Type: 
  Country: None (occurrence: None)
  Receive Date: 20050719
  Receipt Date: 20050223
  Transmission Date: 20060218
  Serious: Yes (Other)
  Sender: FDA-Public Use
  Company Number: 2005036915

PATIENT
  Sex: 0

DRUGS (1)
  1. CELEBREX [Suspect]
     Indication: ILL-DEFINED DISORDER
     Dosage: 600 MG (200 MG, 3 IN 1 D),

REACTIONS (1)
  - MYOCARDIAL INFARCTION [None]
